FAERS Safety Report 5166899-9 (Version None)
Quarter: 2006Q4

REPORT INFORMATION
  Report Type: 
  Country: None (occurrence: None)
  Receive Date: 20061207
  Receipt Date: 20061127
  Transmission Date: 20070319
  Serious: Yes (Other)
  Sender: FDA-Public Use
  Company Number: PHEH2006US14639

PATIENT
  Age: 77 Year
  Sex: Male

DRUGS (2)
  1. GLEEVEC [Suspect]
     Indication: GASTROINTESTINAL STROMAL TUMOUR
     Dosage: 400 MG, QD
     Route: 048
     Dates: start: 20010101
  2. GLEEVEC [Suspect]
     Dosage: UNK, NO TREATMENT

REACTIONS (4)
  - BIOPSY PROSTATE ABNORMAL [None]
  - MALAISE [None]
  - POSITRON EMISSION TOMOGRAM ABNORMAL [None]
  - PROSTATE CANCER [None]
